FAERS Safety Report 6017930-X (Version None)
Quarter: 2008Q4

REPORT INFORMATION
  Report Type: 
  Country: None (occurrence: None)
  Receive Date: 20081223
  Receipt Date: 20081216
  Transmission Date: 20090506
  Serious: Yes (Other)
  Sender: FDA-Public Use
  Company Number: US-PFIZER INC-2008156721

PATIENT
  Sex: Female
  Weight: 67.585 kg

DRUGS (4)
  1. XALATAN [Suspect]
     Indication: INTRAOCULAR PRESSURE TEST
     Dosage: UNK
     Route: 047
  2. PREDNISOLONE ACETATE [Concomitant]
     Dosage: UNK
  3. NEVANAC [Concomitant]
     Dosage: UNK
  4. MOXIFLOXACIN HYDROCHLORIDE [Concomitant]
     Dosage: UNK

REACTIONS (1)
  - CATARACT OPERATION [None]
